FAERS Safety Report 20553226 (Version 1)
Quarter: 2022Q1

REPORT INFORMATION
  Report Type: Spontaneous
  Country: US (occurrence: US)
  Receive Date: 20220304
  Receipt Date: 20220304
  Transmission Date: 20220423
  Serious: Yes (Hospitalization)
  Sender: FDA-Public Use
  Company Number: US-LUNDBECK-DKLU3045187

PATIENT
  Age: 29 Year
  Sex: Male

DRUGS (2)
  1. SABRIL [Suspect]
     Active Substance: VIGABATRIN
     Indication: Epilepsy
     Route: 048
     Dates: start: 202103
  2. SABRIL [Suspect]
     Active Substance: VIGABATRIN
     Indication: Seizure

REACTIONS (3)
  - Blood sodium decreased [Unknown]
  - Infected skin ulcer [Unknown]
  - Pneumonia [Unknown]

NARRATIVE: CASE EVENT DATE: 20220220
